FAERS Safety Report 17841295 (Version 1)
Quarter: 2020Q2

REPORT INFORMATION
  Report Type: Spontaneous
  Country: FR (occurrence: FR)
  Receive Date: 20200529
  Receipt Date: 20200529
  Transmission Date: 20200714
  Serious: Yes (Other)
  Sender: FDA-Public Use
  Company Number: FR-TEVA-2020-FR-1240793

PATIENT
  Age: 12 Year
  Sex: Male

DRUGS (3)
  1. TERCIAN [Suspect]
     Active Substance: CYAMEMAZINE
     Indication: AGGRESSION
     Dosage: SEE COMMENT
     Route: 048
     Dates: start: 20180101, end: 20200505
  2. RISPERIDONE. [Suspect]
     Active Substance: RISPERIDONE
     Indication: AGGRESSION
     Dosage: SEE COMMENT
     Route: 048
     Dates: start: 20180905, end: 20200505
  3. FLUOXETINE [Suspect]
     Active Substance: FLUOXETINE HYDROCHLORIDE
     Indication: AGGRESSION
     Dosage: SEE COMMENT
     Route: 048
     Dates: start: 20180101, end: 20200505

REACTIONS (1)
  - Neutropenia [Not Recovered/Not Resolved]

NARRATIVE: CASE EVENT DATE: 20190225
